FAERS Safety Report 9715114 (Version 1)
Quarter: 2013Q4

REPORT INFORMATION
  Report Type: Spontaneous
  Country: GB (occurrence: GB)
  Receive Date: 20131126
  Receipt Date: 20131126
  Transmission Date: 20140711
  Serious: Yes (Disabling)
  Sender: FDA-Public Use
  Company Number: GB-B.I. PHARMACEUTICALS,INC./RIDGEFIELD-2013-BI-39202YA

PATIENT
  Age: 82 Year
  Sex: Male
  Weight: 68.04 kg

DRUGS (3)
  1. TAMSULOSINA [Suspect]
     Route: 065
     Dates: start: 20130904
  2. ATORVASTATIN [Concomitant]
     Dates: start: 20130718
  3. WARFARIN SODIUM [Concomitant]
     Dates: start: 20130822

REACTIONS (1)
  - Bradycardia [Recovered/Resolved]
